FAERS Safety Report 7678679-0 (Version None)
Quarter: 2011Q3

REPORT INFORMATION
  Report Type: 
  Country: None (occurrence: None)
  Receive Date: 20110811
  Receipt Date: 20110808
  Transmission Date: 20111222
  Serious: Yes (Hospitalization)
  Sender: FDA-Public Use
  Company Number: US-GILEAD-2011-0042739

PATIENT
  Age: 76 Year
  Sex: Female

DRUGS (1)
  1. LETAIRIS [Suspect]
     Indication: PRODUCT USED FOR UNKNOWN INDICATION
     Route: 048
     Dates: start: 20110624

REACTIONS (6)
  - OEDEMA [None]
  - PNEUMONIA [None]
  - CHEST PAIN [None]
  - HYPOTENSION [None]
  - DYSPNOEA [None]
  - HEADACHE [None]
